FAERS Safety Report 21500019 (Version 1)
Quarter: 2022Q4

REPORT INFORMATION
  Report Type: Spontaneous
  Country: US (occurrence: US)
  Receive Date: 20221024
  Receipt Date: 20221024
  Transmission Date: 20230112
  Serious: No
  Sender: FDA-Public Use
  Company Number: US-PFIZER INC-PV202200087601

PATIENT
  Age: 66 Year
  Sex: Female

DRUGS (1)
  1. TRAZIMERA [Suspect]
     Active Substance: TRASTUZUMAB-QYYP
     Indication: Chemotherapy
     Dosage: 420 MG (FREQUENCY: Q 3 WEEKS, QUANTITY: 1 REFILLS: 15)

REACTIONS (3)
  - Product use issue [Unknown]
  - Nausea [Unknown]
  - Vomiting [Unknown]
